FAERS Safety Report 19930391 (Version 2)
Quarter: 2021Q4

REPORT INFORMATION
  Report Type: Report from Study
  Country: CH (occurrence: CH)
  Receive Date: 20211008
  Receipt Date: 20211112
  Transmission Date: 20220303
  Serious: Yes (Hospitalization)
  Sender: FDA-Public Use
  Company Number: CH-BEH-2021136615

PATIENT
  Sex: Female

DRUGS (1)
  1. HIZENTRA [Suspect]
     Active Substance: HUMAN IMMUNOGLOBULIN G
     Indication: Immunodeficiency common variable
     Dosage: 10 GRAM, QW
     Route: 058
     Dates: start: 20200608, end: 20210820

REACTIONS (1)
  - Pancreatitis [Recovering/Resolving]

NARRATIVE: CASE EVENT DATE: 20210820
